FAERS Safety Report 11870805 (Version 1)
Quarter: 2015Q4

REPORT INFORMATION
  Report Type: Spontaneous
  Country: US (occurrence: None)
  Receive Date: 20151224
  Receipt Date: 20151224
  Transmission Date: 20160305
  Serious: Yes (Hospitalization)
  Sender: FDA-Public Use
  Company Number: None

PATIENT
  Age: 28 Year
  Sex: Male

DRUGS (2)
  1. WARFARIN [Suspect]
     Active Substance: WARFARIN
     Indication: DEEP VEIN THROMBOSIS
     Route: 048
     Dates: end: 20150704
  2. DOXYCYCLINE. [Concomitant]
     Active Substance: DOXYCYCLINE

REACTIONS (7)
  - Haematochezia [None]
  - Fatigue [None]
  - Communication disorder [None]
  - Abdominal pain [None]
  - Subdural haematoma [None]
  - International normalised ratio increased [None]
  - Cellulitis [None]

NARRATIVE: CASE EVENT DATE: 20150704
